FAERS Safety Report 17238420 (Version 1)
Quarter: 2020Q1

REPORT INFORMATION
  Report Type: Spontaneous
  Country: GB (occurrence: GB)
  Receive Date: 20200106
  Receipt Date: 20200106
  Transmission Date: 20200409
  Serious: Yes (Death)
  Sender: FDA-Public Use
  Company Number: GB-PERRIGO-20GB000006

PATIENT
  Age: 14 Year
  Sex: Female

DRUGS (15)
  1. FLUCONAZOLE 16028/0107 150 MG [Suspect]
     Active Substance: FLUCONAZOLE
     Indication: ACUTE LYMPHOCYTIC LEUKAEMIA
     Dosage: 100 MG
     Route: 048
     Dates: start: 20000429, end: 20000503
  2. ALLOPURINOL. [Suspect]
     Active Substance: ALLOPURINOL
     Indication: ACUTE LYMPHOCYTIC LEUKAEMIA
     Dosage: 150 MG, QD
     Route: 048
     Dates: start: 20000413, end: 20000418
  3. CEFTAZIDIME. [Suspect]
     Active Substance: CEFTAZIDIME
     Indication: ACUTE LYMPHOCYTIC LEUKAEMIA
     Dosage: 6.6 G
     Route: 042
     Dates: start: 20000428
  4. RANITIDINE HYDROCHLORIDE. [Suspect]
     Active Substance: RANITIDINE HYDROCHLORIDE
     Indication: ACUTE LYMPHOCYTIC LEUKAEMIA
     Dosage: 300 MG
     Route: 048
     Dates: start: 20000606, end: 20000610
  5. METHOTREXATE DISODIUM [Suspect]
     Active Substance: METHOTREXATE SODIUM
     Indication: ACUTE LYMPHOCYTIC LEUKAEMIA
     Dosage: 12.5 MG
     Route: 037
     Dates: start: 20000414, end: 20000511
  6. ASPARAGINASE [Suspect]
     Active Substance: ASPARAGINASE
     Indication: ACUTE LYMPHOCYTIC LEUKAEMIA
     Dosage: 3500 IU, QD
     Route: 042
     Dates: start: 20000425, end: 20000606
  7. CHLORPHENIRAMINE                   /00072501/ [Suspect]
     Active Substance: CHLORPHENIRAMINE
     Indication: ACUTE LYMPHOCYTIC LEUKAEMIA
     Dosage: 5 MG
     Route: 042
     Dates: start: 20000511, end: 20000512
  8. VINCRISTINE SULFATE. [Suspect]
     Active Substance: VINCRISTINE SULFATE
     Indication: ACUTE LYMPHOCYTIC LEUKAEMIA
     Dosage: 2 MG
     Route: 042
     Dates: start: 20000414, end: 20000606
  9. DEXAMETHASONE. [Suspect]
     Active Substance: DEXAMETHASONE
     Indication: ACUTE LYMPHOCYTIC LEUKAEMIA
     Dosage: 14 MG
     Route: 048
     Dates: start: 20000606, end: 20000610
  10. FLUCLOXACILLIN [Suspect]
     Active Substance: FLUCLOXACILLIN
     Indication: ACUTE LYMPHOCYTIC LEUKAEMIA
     Dosage: 5 G
     Route: 042
     Dates: start: 20000428
  11. HYDROCORTISONE. [Suspect]
     Active Substance: HYDROCORTISONE
     Indication: ACUTE LYMPHOCYTIC LEUKAEMIA
     Dosage: 50 MG
     Route: 042
     Dates: start: 20000511
  12. PARACETAMOL [Suspect]
     Active Substance: ACETAMINOPHEN
     Indication: ACUTE LYMPHOCYTIC LEUKAEMIA
     Dosage: 2 G
     Route: 048
     Dates: start: 20000428, end: 20000502
  13. ACICLOVIR 40MG/ML  PL00427/0119 [Suspect]
     Active Substance: ACYCLOVIR
     Indication: ACUTE LYMPHOCYTIC LEUKAEMIA
     Dosage: 2 G, QD
     Route: 048
     Dates: start: 20000428, end: 20000502
  14. SULFAMETHOXAZOLE W/TRIMETHOPRIM [Suspect]
     Active Substance: SULFAMETHOXAZOLE\TRIMETHOPRIM
     Indication: ACUTE LYMPHOCYTIC LEUKAEMIA
     Dosage: 960 MG
     Route: 048
     Dates: start: 20000523, end: 20000610
  15. ETOPOSIDE. [Suspect]
     Active Substance: ETOPOSIDE
     Indication: ACUTE LYMPHOCYTIC LEUKAEMIA
     Dosage: 420 MG
     Route: 042
     Dates: start: 20000523, end: 20000602

REACTIONS (7)
  - Pulmonary haemorrhage [Fatal]
  - Drug ineffective for unapproved indication [Unknown]
  - Cytopenia [Fatal]
  - Staphylococcal infection [Fatal]
  - Condition aggravated [Fatal]
  - Off label use [Unknown]
  - Respiratory tract haemorrhage [Fatal]

NARRATIVE: CASE EVENT DATE: 2000
